FAERS Safety Report 9995254 (Version 2)
Quarter: 2014Q2

REPORT INFORMATION
  Report Type: Spontaneous
  Country: DE (occurrence: None)
  Receive Date: 20140307
  Receipt Date: 20140430
  Transmission Date: 20141212
  Serious: Yes (Hospitalization)
  Sender: FDA-Public Use
  Company Number: AUR-APL-2014-02186

PATIENT
  Age: 90 Year
  Sex: Female

DRUGS (6)
  1. PRAMIPEXOLE [Suspect]
     Indication: PRODUCT USED FOR UNKNOWN INDICATION
  2. RISPERDAL [Suspect]
     Indication: PRODUCT USED FOR UNKNOWN INDICATION
  3. ZYPREXA (OLANZAPINE) [Suspect]
     Indication: PRODUCT USED FOR UNKNOWN INDICATION
  4. VALDOXAN (AGOMELATINE) [Suspect]
     Indication: PRODUCT USED FOR UNKNOWN INDICATION
  5. DIAZEPAM (DIAZEPAM) [Suspect]
     Indication: PRODUCT USED FOR UNKNOWN INDICATION
     Dosage: 45 GTT (15 GTT, 3 IN 1 D)
  6. LEVODOPA [Suspect]
     Indication: PRODUCT USED FOR UNKNOWN INDICATION

REACTIONS (13)
  - Movement disorder [None]
  - Salivary hypersecretion [None]
  - Sedation [None]
  - Abasia [None]
  - Aphasia [None]
  - Aphagia [None]
  - Apathy [None]
  - Drooling [None]
  - Fall [None]
  - Head injury [None]
  - Brain injury [None]
  - Speech disorder [None]
  - Eating disorder [None]
